FAERS Safety Report 23316164 (Version 2)
Quarter: 2024Q1

REPORT INFORMATION
  Report Type: Report from Study
  Country: US (occurrence: US)
  Receive Date: 20231219
  Receipt Date: 20240115
  Transmission Date: 20240410
  Serious: Yes (Disabling, Other)
  Sender: FDA-Public Use
  Company Number: US-GILEAD-2023-0655210

PATIENT
  Age: 80 Year
  Sex: Female

DRUGS (1)
  1. IDELALISIB [Suspect]
     Active Substance: IDELALISIB
     Indication: Chronic lymphocytic leukaemia
     Dosage: 150 MG, BID
     Route: 048
     Dates: start: 20170602

REACTIONS (1)
  - Gastrointestinal lymphoma [Not Recovered/Not Resolved]

NARRATIVE: CASE EVENT DATE: 20231101
